FAERS Safety Report 9531404 (Version 1)
Quarter: 2013Q3

REPORT INFORMATION
  Report Type: Spontaneous
  Country: CA (occurrence: CA)
  Receive Date: 20130918
  Receipt Date: 20130918
  Transmission Date: 20140515
  Serious: Yes (Other)
  Sender: FDA-Public Use
  Company Number: CA-009507513-1309CAN007476

PATIENT
  Age: 65 Year
  Sex: Female

DRUGS (3)
  1. VICTRELIS [Suspect]
     Indication: PRODUCT USED FOR UNKNOWN INDICATION
     Dosage: UNK
     Route: 065
  2. PEGASYS [Suspect]
     Indication: PRODUCT USED FOR UNKNOWN INDICATION
     Dosage: 180 MICROGRAM, UNK
     Route: 065
  3. RBV [Suspect]
     Dosage: 1000 MG, UNK
     Route: 065

REACTIONS (3)
  - Anaemia [Unknown]
  - Chest pain [Unknown]
  - Syncope [Unknown]
